FAERS Safety Report 24008061 (Version 1)
Quarter: 2024Q2

REPORT INFORMATION
  Report Type: Spontaneous
  Country: PL (occurrence: PL)
  Receive Date: 20240625
  Receipt Date: 20240625
  Transmission Date: 20240716
  Serious: Yes (Other)
  Sender: FDA-Public Use
  Company Number: PL-UCBSA-2024019699

PATIENT
  Age: 48 Year
  Sex: Female

DRUGS (3)
  1. BIMZELX [Suspect]
     Active Substance: BIMEKIZUMAB-BKZX
     Indication: Psoriasis
     Dosage: UNK
     Dates: start: 20230829
  2. FAXIGEN XL [Concomitant]
     Indication: Depression
     Dosage: 150 MILLIGRAM, 2X/DAY (BID)
  3. EZYSTA [Concomitant]
     Indication: Depression
     Dosage: 75 MILLIGRAM, 2X/DAY (BID)

REACTIONS (4)
  - Rheumatoid arthritis [Unknown]
  - Arthralgia [Unknown]
  - Musculoskeletal stiffness [Unknown]
  - Pain [Recovering/Resolving]

NARRATIVE: CASE EVENT DATE: 20230829
